FAERS Safety Report 24568639 (Version 2)
Quarter: 2025Q3

REPORT INFORMATION
  Report Type: Spontaneous
  Country: US (occurrence: US)
  Receive Date: 20241031
  Receipt Date: 20250816
  Transmission Date: 20251021
  Serious: No
  Sender: ALEXION PHARMACEUTICALS
  Company Number: US-ASTRAZENECA-202410USA025308US

PATIENT
  Age: 27 Year
  Sex: Male
  Weight: 90 kg

DRUGS (6)
  1. VOYDEYA [Suspect]
     Active Substance: DANICOPAN
     Indication: Paroxysmal nocturnal haemoglobinuria
     Dosage: 150 MILLIGRAM, TID
     Dates: start: 20240417
  2. VOYDEYA [Suspect]
     Active Substance: DANICOPAN
     Dosage: 200 MILLIGRAM, TID
     Dates: start: 20241024
  3. ACYCLOVIR [Concomitant]
     Active Substance: ACYCLOVIR
     Indication: Paroxysmal nocturnal haemoglobinuria
     Dosage: 1 TABLET 400 MILLIGRAM, BID
     Dates: start: 20230713
  4. FOLIC ACID [Concomitant]
     Active Substance: FOLIC ACID
     Indication: Paroxysmal nocturnal haemoglobinuria
     Dosage: 1 MILLIGRAM, QD
     Dates: start: 20230718
  5. EPINEPHRINE [Concomitant]
     Active Substance: EPINEPHRINE
     Indication: Hypersensitivity
     Dates: start: 20230821
  6. VITAMIN B12 [Concomitant]
     Active Substance: CYANOCOBALAMIN
     Indication: Paroxysmal nocturnal haemoglobinuria
     Dosage: 1000 MICROGRAM, QD
     Dates: start: 20240112

REACTIONS (3)
  - Anaemia [Not Recovered/Not Resolved]
  - Haematuria [Unknown]
  - Jaundice [Unknown]

NARRATIVE: CASE EVENT DATE: 20241024
